FAERS Safety Report 25174274 (Version 5)
Quarter: 2025Q4

REPORT INFORMATION
  Report Type: Report from Study
  Country: CA (occurrence: CA)
  Receive Date: 20250408
  Receipt Date: 20251221
  Transmission Date: 20260117
  Serious: Yes (Other)
  Sender: SANDOZ
  Company Number: CA-002147023-NVSC2022CA251077

PATIENT
  Age: 61 Year
  Sex: Female

DRUGS (5)
  1. HYRIMOZ [Suspect]
     Active Substance: ADALIMUMAB-ADAZ
     Indication: Crohn^s disease
     Dosage: 40 MG
  2. HYRIMOZ [Suspect]
     Active Substance: ADALIMUMAB-ADAZ
     Dosage: 40 MG, QW
  3. HYRIMOZ [Suspect]
     Active Substance: ADALIMUMAB-ADAZ
  4. BIAXIN [Concomitant]
     Active Substance: CLARITHROMYCIN
     Indication: Product used for unknown indication
     Dosage: UNK
  5. PANTOPRAZOLE SODIUM [Concomitant]
     Active Substance: PANTOPRAZOLE SODIUM
     Indication: Product used for unknown indication
     Dosage: UNK

REACTIONS (10)
  - Peptic ulcer helicobacter [Unknown]
  - Abdominal pain upper [Unknown]
  - HIV infection [Unknown]
  - Neck mass [Unknown]
  - General physical health deterioration [Unknown]
  - Tooth extraction [Unknown]
  - Dry eye [Unknown]
  - Lymphadenopathy [Unknown]
  - Arthralgia [Unknown]
  - Fungal infection [Unknown]

NARRATIVE: CASE EVENT DATE: 20250408
